FAERS Safety Report 19084697 (Version 1)
Quarter: 2021Q2

REPORT INFORMATION
  Report Type: Spontaneous
  Country: IT (occurrence: IT)
  Receive Date: 20210402
  Receipt Date: 20210402
  Transmission Date: 20210717
  Serious: Yes (Death, Other)
  Sender: FDA-Public Use
  Company Number: IT-SUN PHARMACEUTICAL INDUSTRIES LTD-2021R1-288980

PATIENT
  Age: 70 Year
  Sex: Male

DRUGS (3)
  1. CAPECITABINE. [Suspect]
     Active Substance: CAPECITABINE
     Indication: POROCARCINOMA
     Dosage: 500 MILLIGRAM, BID
     Route: 065
  2. CETUXIMAB. [Concomitant]
     Active Substance: CETUXIMAB
     Indication: POROCARCINOMA
     Dosage: 400 MILLIGRAM/SQ. METER, QD
     Route: 065
  3. CETUXIMAB. [Concomitant]
     Active Substance: CETUXIMAB
     Dosage: 250 MILLIGRAM/SQ. METER, QD
     Route: 065

REACTIONS (3)
  - Toxicity to various agents [Unknown]
  - Palmar-plantar erythrodysaesthesia syndrome [Unknown]
  - Superinfection [Unknown]
